FAERS Safety Report 4659215-X (Version None)
Quarter: 2005Q2

REPORT INFORMATION
  Report Type: 
  Country: None (occurrence: None)
  Receive Date: 20050511
  Receipt Date: 20050221
  Transmission Date: 20051028
  Serious: Yes (Hospitalization)
  Sender: FDA-Public Use
  Company Number: 2005AP01281

PATIENT
  Age: 78 Year
  Sex: Female

DRUGS (5)
  1. MEROPEN [Suspect]
     Indication: PNEUMONIA
     Route: 041
     Dates: start: 20041001
  2. MINOCYCLINE HCL [Concomitant]
  3. FUNGUARD [Concomitant]
     Route: 041
  4. FOY [Concomitant]
     Route: 041
  5. UNASYN [Concomitant]

REACTIONS (1)
  - PANCYTOPENIA [None]
